FAERS Safety Report 5123474-X (Version None)
Quarter: 2006Q4

REPORT INFORMATION
  Report Type: 
  Country: None (occurrence: None)
  Receive Date: 20061009
  Receipt Date: 20060929
  Transmission Date: 20070319
  Serious: Yes (Life-Threatening)
  Sender: FDA-Public Use
  Company Number: FR-ABBOTT-06P-056-0345414-00

PATIENT
  Age: 53 Year
  Sex: Male

DRUGS (6)
  1. NORVIR [Suspect]
     Indication: HIV INFECTION
     Route: 048
     Dates: start: 20060717
  2. APTIVUS [Suspect]
     Indication: HIV INFECTION
     Route: 048
     Dates: start: 20060717, end: 20060809
  3. ABACAVIR SULFATE [Concomitant]
     Indication: HIV INFECTION
     Route: 048
     Dates: start: 20060623
  4. TRUVADA [Concomitant]
     Indication: HIV INFECTION
     Dosage: EMTRICITABINE 200MG/TENOFOVIR 245 MG
     Route: 048
     Dates: start: 20060623
  5. KOGENATE [Concomitant]
     Indication: COAGULOPATHY
     Route: 050
     Dates: end: 20060721
  6. KOGENATE [Concomitant]
     Route: 050
     Dates: end: 20060801

REACTIONS (3)
  - HAEMARTHROSIS [None]
  - HAEMATOMA [None]
  - HAEMORRHAGE [None]
